FAERS Safety Report 5823689-9 (Version None)
Quarter: 2008Q3

REPORT INFORMATION
  Report Type: 
  Country: None (occurrence: None)
  Receive Date: 20080725
  Receipt Date: 20080716
  Transmission Date: 20090109
  Serious: Yes (Other)
  Sender: FDA-Public Use
  Company Number: AU-PFIZER INC-2008043270

PATIENT
  Sex: Male
  Weight: 98 kg

DRUGS (1)
  1. LIPITOR [Suspect]
     Route: 048
     Dates: start: 19940101, end: 20080601

REACTIONS (8)
  - CONSTIPATION [None]
  - HYPOAESTHESIA [None]
  - MUSCLE SPASMS [None]
  - NEUROPATHY PERIPHERAL [None]
  - PARAESTHESIA [None]
  - PERIPHERAL COLDNESS [None]
  - RENAL IMPAIRMENT [None]
  - SENSORY LOSS [None]
